FAERS Safety Report 16933843 (Version 2)
Quarter: 2019Q4

REPORT INFORMATION
  Report Type: Report from Study
  Country: US (occurrence: US)
  Receive Date: 20191018
  Receipt Date: 20191101
  Transmission Date: 20200122
  Serious: Yes (Other)
  Sender: FDA-Public Use
  Company Number: NVSC2019US006700

PATIENT
  Sex: Female

DRUGS (6)
  1. INC424A [Suspect]
     Active Substance: RUXOLITINIB
     Dosage: 10 MG, BID
     Route: 048
     Dates: start: 20191009
  2. CARBOPLATIN FOR INJECTION [Suspect]
     Active Substance: CARBOPLATIN
     Indication: OVARIAN EPITHELIAL CANCER
     Dosage: AUC 5 (D1 OF EACH 21-DAY CYCLE)
     Route: 042
     Dates: start: 20190425, end: 20190911
  3. PACLITAXEL. [Suspect]
     Active Substance: PACLITAXEL
     Indication: OVARIAN EPITHELIAL CANCER
     Dosage: 70 MG/M2 (D1 ,8, 15 OF EACH 21-DAY CYCLE)
     Route: 042
     Dates: start: 20190425, end: 20190925
  4. PACLITAXEL. [Suspect]
     Active Substance: PACLITAXEL
     Dosage: 70 MG/M2  (D1 ,8, 15 OF EACH 21-DAY CYCLE)
     Route: 042
     Dates: start: 20191009
  5. CARBOPLATIN FOR INJECTION [Suspect]
     Active Substance: CARBOPLATIN
     Dosage: AUC 5 (D1 OF EACH 21-DAY CYCLE)
     Route: 042
     Dates: start: 20191009
  6. INC424A [Suspect]
     Active Substance: RUXOLITINIB
     Indication: OVARIAN EPITHELIAL CANCER
     Dosage: 15 MG, BID
     Route: 048
     Dates: start: 20190425, end: 20191008

REACTIONS (1)
  - Neutrophil count decreased [Recovered/Resolved]

NARRATIVE: CASE EVENT DATE: 20191002
